FAERS Safety Report 24378952 (Version 2)
Quarter: 2024Q4

REPORT INFORMATION
  Report Type: Spontaneous
  Country: US (occurrence: US)
  Receive Date: 20240930
  Receipt Date: 20241014
  Transmission Date: 20250115
  Serious: No
  Sender: ELI LILLY AND COMPANY
  Company Number: US-ELI_LILLY_AND_COMPANY-US202409017128

PATIENT
  Age: 61 Year
  Sex: Female

DRUGS (1)
  1. VERZENIO [Suspect]
     Active Substance: ABEMACICLIB
     Indication: Breast cancer female
     Dosage: 1 DOSAGE FORM, BID (EVERY 12 HOURS)
     Route: 048
     Dates: start: 20240828

REACTIONS (8)
  - Abdominal pain upper [Unknown]
  - Product dose omission issue [Unknown]
  - Constipation [Unknown]
  - Decreased appetite [Unknown]
  - Diarrhoea [Unknown]
  - Fatigue [Unknown]
  - Vomiting [Unknown]
  - Nausea [Unknown]
